FAERS Safety Report 14624946 (Version 1)
Quarter: 2018Q1

REPORT INFORMATION
  Report Type: Spontaneous
  Country: US (occurrence: US)
  Receive Date: 20180310
  Receipt Date: 20180310
  Transmission Date: 20180509
  Serious: No
  Sender: FDA-Public Use
  Company Number: None

PATIENT
  Age: 73 Year
  Sex: Male

DRUGS (1)
  1. HARVONI [Suspect]
     Active Substance: LEDIPASVIR\SOFOSBUVIR

REACTIONS (5)
  - Abnormal dreams [None]
  - Somnolence [None]
  - Blood pressure increased [None]
  - Insomnia [None]
  - Epistaxis [None]

NARRATIVE: CASE EVENT DATE: 20180309
